FAERS Safety Report 4761402-7 (Version None)
Quarter: 2005Q3

REPORT INFORMATION
  Report Type: 
  Country: None (occurrence: None)
  Receive Date: 20050902
  Receipt Date: 20050902
  Transmission Date: 20060218
  Serious: Yes (Hospitalization)
  Sender: FDA-Public Use
  Company Number: None

PATIENT
  Age: 79 Year
  Sex: Male
  Weight: 78.0187 kg

DRUGS (2)
  1. DIVALPROEX   500 MG   ER [Suspect]
     Indication: ABNORMAL BEHAVIOUR
     Dosage: 2000 MG   QHS   PO
     Route: 048
     Dates: start: 20050511, end: 20050813
  2. METOCLOPRAMIDE [Suspect]
     Indication: IMPAIRED GASTRIC EMPTYING
     Dosage: 10 MG   Q6H   PO
     Route: 048
     Dates: start: 20050511, end: 20050813

REACTIONS (2)
  - MENTAL DISORDER [None]
  - MENTAL STATUS CHANGES [None]
